FAERS Safety Report 5276837-6 (Version None)
Quarter: 2007Q1

REPORT INFORMATION
  Report Type: 
  Country: None (occurrence: None)
  Receive Date: 20070327
  Receipt Date: 20070315
  Transmission Date: 20070707
  Serious: Yes (Hospitalization)
  Sender: FDA-Public Use
  Company Number: US-JNJFOC-20070205762

PATIENT
  Sex: Female
  Weight: 107.05 kg

DRUGS (14)
  1. TOPAMAX [Suspect]
  2. TOPAMAX [Suspect]
  3. TOPAMAX [Suspect]
  4. TOPAMAX [Suspect]
     Indication: BIPOLAR DISORDER
     Dosage: TAKEN FOR ^SEVERAL YEARS^
  5. SEROQUEL [Concomitant]
     Indication: BIPOLAR DISORDER
  6. SYNTHROID [Concomitant]
     Indication: HYPOTHYROIDISM
  7. EFFEXOR [Concomitant]
     Indication: DEPRESSION
  8. XANAX [Concomitant]
     Indication: SLEEP DISORDER
  9. XANAX [Concomitant]
     Indication: ANXIETY
  10. ZYRTEC [Concomitant]
     Indication: HYPERSENSITIVITY
  11. ABILIFY [Concomitant]
  12. ABILIFY [Concomitant]
  13. ABILIFY [Concomitant]
     Indication: BIPOLAR DISORDER
  14. SEASONALE [Concomitant]
     Indication: CONTRACEPTION

REACTIONS (1)
  - OSTEOARTHRITIS [None]
